FAERS Safety Report 9530639 (Version 3)
Quarter: 2013Q4

REPORT INFORMATION
  Report Type: Spontaneous
  Country: US (occurrence: US)
  Receive Date: 20130918
  Receipt Date: 20131111
  Transmission Date: 20140711
  Serious: Yes (Death, Life-Threatening, Disabling, Other)
  Sender: FDA-Public Use
  Company Number: US-009507513-1309USA004261

PATIENT
  Age: 65 Year
  Sex: Female
  Weight: 46.26 kg

DRUGS (2)
  1. JANUMET [Suspect]
     Indication: DIABETES MELLITUS
     Dosage: 50/500 MG, BID
     Route: 048
     Dates: start: 20110830, end: 20120823
  2. KOMBIGLYZE XR [Suspect]

REACTIONS (4)
  - Pancreatic carcinoma [Fatal]
  - Blood glucose abnormal [Unknown]
  - Abdominal pain [Recovered/Resolved]
  - Gastrointestinal disorder [Unknown]
